FAERS Safety Report 19139621 (Version 1)
Quarter: 2021Q2

REPORT INFORMATION
  Report Type: Spontaneous
  Country: CN (occurrence: CN)
  Receive Date: 20210415
  Receipt Date: 20210415
  Transmission Date: 20210717
  Serious: Yes (Death, Other)
  Sender: FDA-Public Use
  Company Number: CN-PFIZER INC-2021380024

PATIENT
  Age: 78 Year
  Sex: Male

DRUGS (1)
  1. VIZIMPRO [Suspect]
     Active Substance: DACOMITINIB
     Indication: LUNG CANCER METASTATIC
     Dosage: 30 MG, DAILY
     Route: 048
     Dates: start: 20200416

REACTIONS (6)
  - Respiratory failure [Fatal]
  - Interstitial lung disease [Unknown]
  - Rash [Unknown]
  - Diarrhoea [Unknown]
  - Paronychia [Unknown]
  - Vomiting [Unknown]
